FAERS Safety Report 17776225 (Version 3)
Quarter: 2021Q2

REPORT INFORMATION
  Report Type: Report from Study
  Country: US (occurrence: US)
  Receive Date: 20200513
  Receipt Date: 20210521
  Transmission Date: 20210716
  Serious: Yes (Death, Other)
  Sender: FDA-Public Use
  Company Number: US-ACADIA PHARMACEUTICALS INC.-ACA-2019-013217

PATIENT
  Age: 43 Year
  Sex: Male

DRUGS (5)
  1. NUPLAZID [Suspect]
     Active Substance: PIMAVANSERIN TARTRATE
     Indication: PARKINSON^S DISEASE
     Dosage: 34 MILLIGRAM, QD
     Route: 048
     Dates: start: 20181122
  2. CLOZAPINE. [Concomitant]
     Active Substance: CLOZAPINE
  3. NUPLAZID [Suspect]
     Active Substance: PIMAVANSERIN TARTRATE
     Dosage: 34 MILLIGRAM, QD
     Route: 048
     Dates: start: 20190101, end: 20210101
  4. NUPLAZID [Suspect]
     Active Substance: PIMAVANSERIN TARTRATE
     Dosage: 34 MILLIGRAM, QD
     Route: 048
     Dates: start: 202103
  5. RYTARY [Concomitant]
     Active Substance: CARBIDOPA\LEVODOPA

REACTIONS (3)
  - Respiratory failure [Recovered/Resolved]
  - Disease progression [Unknown]
  - Peripheral swelling [Unknown]

NARRATIVE: CASE EVENT DATE: 19950101
